FAERS Safety Report 24637486 (Version 1)
Quarter: 2024Q4

REPORT INFORMATION
  Report Type: Spontaneous
  Country: PT (occurrence: PT)
  Receive Date: 20241119
  Receipt Date: 20241119
  Transmission Date: 20250115
  Serious: Yes (Life-Threatening)
  Sender: FRESENIUS KABI
  Company Number: None

PATIENT
  Age: 71 Year
  Sex: Female
  Weight: 77 kg

DRUGS (11)
  1. AZITHROMYCIN MONOHYDRATE [Suspect]
     Active Substance: AZITHROMYCIN MONOHYDRATE
     Indication: Pneumonia
     Dosage: 500 MG, 1 TIME A DAY, FOR 3 DAYS (ONLY TOOK 1 DOSE)?FORM OF ADMIN: POWDER FOR SOLUTION FOR INFUSION
     Route: 042
     Dates: start: 20241101, end: 20241101
  2. ESOMEPRAZOLE [Concomitant]
     Active Substance: ESOMEPRAZOLE
     Indication: Product used for unknown indication
     Dosage: 1 TABLET IN FASTING
     Route: 048
  3. AZILSARTAN KAMEDOXOMIL\CHLORTHALIDONE [Concomitant]
     Active Substance: AZILSARTAN KAMEDOXOMIL\CHLORTHALIDONE
     Dosage: 1 TABLET AT BREAKFAST?FOA-FILM-COATED TABLET
     Route: 048
  4. LERCANIDIPINE [Concomitant]
     Active Substance: LERCANIDIPINE
     Indication: Product used for unknown indication
     Dosage: 1 TABLET AT BEDTIME
     Route: 048
  5. VITAMIN D [Concomitant]
     Active Substance: VITAMIN D NOS
     Indication: Product used for unknown indication
  6. METHOTREXATE [Concomitant]
     Active Substance: METHOTREXATE
     Indication: Product used for unknown indication
     Dosage: 1 SUBCUTANEOUS INJECTION WEEKLY, ON FRIDAYS
     Route: 058
  7. FOLIC ACID [Concomitant]
     Active Substance: FOLIC ACID
     Indication: Product used for unknown indication
     Dosage: 2 TABLETS AT LUNCH ON MONDAY
  8. Vigantol [Concomitant]
     Indication: Product used for unknown indication
     Dosage: 4 DROPS AT BREAKFAST?FOA-ORAL SOLUTION
     Route: 048
  9. SULFASALAZINE [Concomitant]
     Active Substance: SULFASALAZINE
     Indication: Product used for unknown indication
     Dosage: 2 TABLETS AT BREAKFAST AND 1 TABLET AT DINNER?FOA-GASTRO-RESISTANT TABLET
     Route: 048
  10. TIZANIDINE [Concomitant]
     Active Substance: TIZANIDINE
     Indication: Product used for unknown indication
     Dosage: 1 TABLET AT BEDTIME
  11. DENOSUMAB [Concomitant]
     Active Substance: DENOSUMAB
     Indication: Product used for unknown indication
     Dosage: 1 INJECTION EVERY 6 MONTHS (PERFORMED OCT/2024)

REACTIONS (4)
  - Injection site pain [Recovered/Resolved]
  - Rash [Recovered/Resolved]
  - Oxygen saturation decreased [Recovered/Resolved]
  - Hypotension [Recovered/Resolved]

NARRATIVE: CASE EVENT DATE: 20241101
